FAERS Safety Report 6843523-8 (Version None)
Quarter: 2010Q3

REPORT INFORMATION
  Report Type: 
  Country: None (occurrence: None)
  Receive Date: 20100712
  Receipt Date: 20100628
  Transmission Date: 20110219
  Serious: Yes (Other)
  Sender: FDA-Public Use
  Company Number: 632929

PATIENT
  Age: 58 Year
  Sex: Male

DRUGS (5)
  1. PACLITAXEL [Suspect]
     Dosage: 150 MG MILLIGRAM(S), INTRAVENOUS
     Route: 042
     Dates: start: 20100601, end: 20100601
  2. (SOLDESAM /00016002/) [Concomitant]
  3. (TRIMETON /00072502/) [Concomitant]
  4. (RANIDIL) [Concomitant]
  5. (PLASIL /00041901/) [Concomitant]

REACTIONS (4)
  - CYANOSIS [None]
  - DYSPNOEA [None]
  - HYPERHIDROSIS [None]
  - SENSATION OF FOREIGN BODY [None]
